FAERS Safety Report 9185067 (Version 2)
Quarter: 2013Q1

REPORT INFORMATION
  Report Type: Spontaneous
  Country: JP (occurrence: JP)
  Receive Date: 20130325
  Receipt Date: 20130328
  Transmission Date: 20140127
  Serious: Yes (Hospitalization)
  Sender: FDA-Public Use
  Company Number: JP-TEVA-391623ISR

PATIENT
  Age: 6 Decade
  Sex: Female

DRUGS (10)
  1. PREDNISOLONE [Suspect]
     Dosage: 20 MILLIGRAM DAILY; DAY 34
     Route: 048
  2. PREDNISOLONE [Suspect]
     Dosage: 10 MILLIGRAM DAILY; DAY 36
     Route: 048
  3. PREDNISOLONE [Suspect]
     Dosage: 60 MILLIGRAM DAILY;
     Route: 048
  4. PREDNISOLONE [Suspect]
     Dosage: 30 MILLIGRAM DAILY;
     Route: 048
  5. ALLOPURINOL [Suspect]
     Dosage: 200 MILLIGRAM DAILY; 200 MG/DAY
     Route: 048
  6. PREDNISOLONE [Suspect]
  7. PREDNISOLONE [Suspect]
     Dosage: 90 MILLIGRAM DAILY;
  8. TELAPREVIR [Suspect]
     Indication: CHRONIC HEPATITIS C
     Dosage: 1500 MILLIGRAM DAILY;
     Route: 065
  9. RIBAVIRIN [Suspect]
     Indication: CHRONIC HEPATITIS C
     Dosage: 400 MILLIGRAM DAILY;
     Route: 065
  10. PEGINTERFERON ALFA-2B [Suspect]
     Indication: CHRONIC HEPATITIS C
     Dosage: 1.4 G/KG/WEEK
     Route: 065

REACTIONS (6)
  - Toxic epidermal necrolysis [Recovered/Resolved]
  - Pharyngitis bacterial [Unknown]
  - Cytomegalovirus test positive [Recovered/Resolved]
  - Blood beta-D-glucan increased [Recovered/Resolved]
  - Constipation [Unknown]
  - Haemorrhoids [Unknown]
